FAERS Safety Report 5796654-8 (Version None)
Quarter: 2008Q3

REPORT INFORMATION
  Report Type: 
  Country: None (occurrence: None)
  Receive Date: 20080701
  Receipt Date: 20080620
  Transmission Date: 20090109
  Serious: Yes (Hospitalization)
  Sender: FDA-Public Use
  Company Number: CH-JNJFOC-20080604715

PATIENT
  Age: 46 Year
  Sex: Female

DRUGS (9)
  1. DURAGESIC-100 [Suspect]
     Indication: PAIN
     Route: 062
  2. TEGRETOL [Interacting]
     Indication: EPILEPSY
     Route: 048
  3. ANAFRANIL [Suspect]
     Indication: DEPRESSION
     Route: 048
  4. CLONAZEPAM [Interacting]
     Indication: EPILEPSY
     Route: 048
  5. MORPHINE HCL ELIXIR [Concomitant]
     Route: 065
  6. DAFALGAN [Concomitant]
     Route: 048
  7. PULMICORT-100 [Concomitant]
     Route: 065
  8. DOSPIR [Concomitant]
     Route: 055
  9. LORAZEPAM [Concomitant]
     Route: 065

REACTIONS (3)
  - DRUG INEFFECTIVE [None]
  - DRUG INTERACTION [None]
  - PAIN [None]
